FAERS Safety Report 9991642 (Version 1)
Quarter: 2014Q1

REPORT INFORMATION
  Report Type: Spontaneous
  Country: US (occurrence: None)
  Receive Date: 20140123
  Receipt Date: 20140123
  Transmission Date: 20141002
  Serious: Yes (Hospitalization)
  Sender: FDA-Public Use
  Company Number: UTC-039857

PATIENT
  Age: 52 Year
  Sex: Female
  Weight: 81.82 kg

DRUGS (3)
  1. TYVASO (6 MICROGRAM, AEROSOL FOR INHALATION) (TREPROSTINIL SODIUM) [Suspect]
     Indication: COR PULMONALE CHRONIC
     Route: 055
     Dates: start: 20120420, end: 201310
  2. ADCIRCA (TADALAFIL) [Concomitant]
  3. LETAIRIS (AMBERISENTAN) [Concomitant]

REACTIONS (1)
  - Hypertension [None]
